FAERS Safety Report 6261071-3 (Version None)
Quarter: 2009Q3

REPORT INFORMATION
  Report Type: 
  Country: None (occurrence: None)
  Receive Date: 20090707
  Receipt Date: 20090629
  Transmission Date: 20100115
  Serious: Yes (Other)
  Sender: FDA-Public Use
  Company Number: 2009SP014262

PATIENT
  Sex: Female

DRUGS (7)
  1. NASONEX [Suspect]
     Indication: DRUG USE FOR UNKNOWN INDICATION
     Dosage: NAS
     Route: 045
  2. REBIF [Suspect]
     Indication: MULTIPLE SCLEROSIS
     Dosage: 44 MCG; TID; SC, 44 MCG; TID; SC
     Route: 058
     Dates: start: 20050523, end: 20080619
  3. REBIF [Suspect]
     Indication: MULTIPLE SCLEROSIS
     Dosage: 44 MCG; TID; SC, 44 MCG; TID; SC
     Route: 058
     Dates: start: 20090211
  4. NEXIUM [Suspect]
     Indication: GASTROOESOPHAGEAL REFLUX DISEASE
  5. VITAMIN TAB [Suspect]
     Indication: DRUG USE FOR UNKNOWN INDICATION
  6. LIDODERM [Concomitant]
  7. IRON [Concomitant]

REACTIONS (3)
  - DRUG EXPOSURE BEFORE PREGNANCY [None]
  - IDIOPATHIC THROMBOCYTOPENIC PURPURA [None]
  - PREGNANCY [None]
